FAERS Safety Report 6911905-1 (Version None)
Quarter: 2010Q3

REPORT INFORMATION
  Report Type: 
  Country: None (occurrence: None)
  Receive Date: 20100806
  Receipt Date: 20071001
  Transmission Date: 20110219
  Serious: Yes (Other)
  Sender: FDA-Public Use
  Company Number: US-PFIZER INC-2007025172

PATIENT
  Sex: Female

DRUGS (3)
  1. DETROL LA [Suspect]
  2. DETROL [Suspect]
  3. ENABLEX [Suspect]

REACTIONS (4)
  - ABDOMINAL DISCOMFORT [None]
  - MICTURITION URGENCY [None]
  - POLLAKIURIA [None]
  - URINARY RETENTION [None]
